FAERS Safety Report 6644095-3 (Version None)
Quarter: 2010Q1

REPORT INFORMATION
  Report Type: 
  Country: None (occurrence: None)
  Receive Date: 20100322
  Receipt Date: 20100309
  Transmission Date: 20100710
  Serious: Yes (Hospitalization, Other)
  Sender: FDA-Public Use
  Company Number: PHHY2009AU58507

PATIENT
  Sex: Male
  Weight: 84.3 kg

DRUGS (7)
  1. CLOZARIL [Suspect]
     Indication: SCHIZOPHRENIA
     Dosage: 200 MG DAILY
     Route: 048
     Dates: start: 20040813, end: 20091222
  2. CLOZARIL [Suspect]
     Indication: SUICIDE ATTEMPT
  3. AZITHROMYCIN [Interacting]
  4. GENTAMICIN [Interacting]
  5. METRONIDAZOLE [Concomitant]
     Dosage: 400 MG, TID
     Route: 048
     Dates: start: 20090101
  6. LIPITOR [Concomitant]
     Dosage: 10 MG
     Route: 048
  7. ZIPRASIDONE HCL [Concomitant]

REACTIONS (17)
  - BONE MARROW FAILURE [None]
  - DYSPNOEA [None]
  - GASTROENTERITIS [None]
  - HAEMOGLOBIN DECREASED [None]
  - HYPOXIA [None]
  - INSOMNIA [None]
  - LETHARGY [None]
  - NAUSEA [None]
  - NEUTROPENIA [None]
  - PALLOR [None]
  - PANCYTOPENIA [None]
  - PNEUMONIA MYCOPLASMAL [None]
  - PRODUCTIVE COUGH [None]
  - PYREXIA [None]
  - VOMITING [None]
  - WEIGHT DECREASED [None]
  - WHITE BLOOD CELL COUNT DECREASED [None]
